FAERS Safety Report 5310940-7 (Version None)
Quarter: 2007Q2

REPORT INFORMATION
  Report Type: 
  Country: None (occurrence: None)
  Receive Date: 20070426
  Receipt Date: 20070426
  Transmission Date: 20071010
  Serious: No
  Sender: FDA-Public Use
  Company Number: None

PATIENT
  Age: 13 Year
  Sex: Male
  Weight: 43.9989 kg

DRUGS (1)
  1. CONCERTA [Suspect]
     Dosage: 27MG  Q 24 HRS  PO
     Route: 048
     Dates: start: 20070329, end: 20070417

REACTIONS (3)
  - ATTENTION DEFICIT/HYPERACTIVITY DISORDER [None]
  - CONDITION AGGRAVATED [None]
  - PHARMACEUTICAL PRODUCT COUNTERFEIT [None]
